FAERS Safety Report 7007852-X (Version None)
Quarter: 2010Q3

REPORT INFORMATION
  Report Type: 
  Country: None (occurrence: None)
  Receive Date: 20100922
  Receipt Date: 20100913
  Transmission Date: 20110219
  Serious: Yes (Other)
  Sender: FDA-Public Use
  Company Number: BE-ROCHE-727805

PATIENT
  Age: 79 Year
  Sex: Female

DRUGS (5)
  1. BEVACIZUMAB [Suspect]
     Route: 042
     Dates: start: 20100128, end: 20100408
  2. FOLINIC ACID [Suspect]
     Dosage: REPORTED AS; FOLFIRI
     Route: 042
     Dates: start: 20100128, end: 20100408
  3. FLUOROURACIL [Suspect]
     Dosage: REPORTED AS; FOLFIRI
     Route: 042
     Dates: start: 20100128, end: 20100408
  4. IRINOTECAN HCL [Suspect]
     Dosage: REPORTED AS; FOLFIRI
     Route: 042
     Dates: start: 20100128
  5. IRINOTECAN HCL [Suspect]
     Route: 042
     Dates: start: 20100311, end: 20100824

REACTIONS (1)
  - ANAEMIA [None]
